FAERS Safety Report 21174111 (Version 1)
Quarter: 2022Q3

REPORT INFORMATION
  Report Type: Spontaneous
  Country: US (occurrence: US)
  Receive Date: 20220804
  Receipt Date: 20220804
  Transmission Date: 20221026
  Serious: Yes (Hospitalization)
  Sender: FDA-Public Use
  Company Number: US-Blueprint Medicines Corporation-SP-US-2022-002430

PATIENT
  Age: 72 Year
  Sex: Female

DRUGS (2)
  1. AYVAKIT [Suspect]
     Active Substance: AVAPRITINIB
     Indication: Product used for unknown indication
     Route: 048
     Dates: start: 202001
  2. AYVAKIT [Suspect]
     Active Substance: AVAPRITINIB
     Route: 048
     Dates: start: 20220728

REACTIONS (10)
  - Blood magnesium abnormal [Unknown]
  - Blood electrolytes abnormal [Unknown]
  - Nausea [Unknown]
  - Vomiting projectile [Unknown]
  - Diarrhoea [Unknown]
  - Raynaud^s phenomenon [Unknown]
  - Dry mouth [Unknown]
  - Dry eye [Unknown]
  - Drug interaction [Unknown]
  - Product dose omission issue [Unknown]

NARRATIVE: CASE EVENT DATE: 20201201
